FAERS Safety Report 25702849 (Version 2)
Quarter: 2025Q3

REPORT INFORMATION
  Report Type: Spontaneous
  Country: EU (occurrence: EU)
  Receive Date: 20250819
  Receipt Date: 20250923
  Transmission Date: 20251021
  Serious: Yes (Life-Threatening, Other)
  Sender: NOVO NORDISK
  Company Number: EU-NOVOPROD-1471397

PATIENT
  Age: 65 Year
  Sex: Female
  Weight: 129.5 kg

DRUGS (1)
  1. WEGOVY [Suspect]
     Active Substance: SEMAGLUTIDE
     Indication: Obesity
     Dosage: 2.4 MG, QW
     Route: 058
     Dates: start: 20240601

REACTIONS (6)
  - Road traffic accident [Unknown]
  - Feeling drunk [Unknown]
  - Malaise [Recovering/Resolving]
  - Constipation [Recovered/Resolved]
  - Weight increased [Unknown]
  - Drug ineffective [Unknown]
